FAERS Safety Report 6574717-7 (Version None)
Quarter: 2010Q1

REPORT INFORMATION
  Report Type: 
  Country: None (occurrence: None)
  Receive Date: 20100209
  Receipt Date: 20100129
  Transmission Date: 20100710
  Serious: Yes (Hospitalization, Other)
  Sender: FDA-Public Use
  Company Number: PHHY2010DE03125

PATIENT
  Sex: Female
  Weight: 84 kg

DRUGS (3)
  1. ALISKIREN ALI+ [Suspect]
     Indication: HYPERTENSION
     Dosage: 150 MG DAILY
     Dates: start: 20090119
  2. PENTAERYTHRITOL TETRANITRATE [Concomitant]
     Indication: MYOCARDIAL ISCHAEMIA
     Dosage: 2 DF DAILY
     Dates: start: 20080902
  3. TRIAMPUR COMPOSITUM [Concomitant]
     Indication: HYPERTENSION
     Dosage: 1 DF DAILY
     Dates: start: 20060619

REACTIONS (3)
  - ATRIAL FIBRILLATION [None]
  - BLOOD PRESSURE INCREASED [None]
  - DYSPNOEA [None]
